FAERS Safety Report 5453649-1 (Version None)
Quarter: 2007Q3

REPORT INFORMATION
  Report Type: 
  Country: None (occurrence: None)
  Receive Date: 20070917
  Receipt Date: 20070907
  Transmission Date: 20080115
  Serious: Yes (Other)
  Sender: FDA-Public Use
  Company Number: PHEH2007US12242

PATIENT
  Sex: Female

DRUGS (2)
  1. HERCEPTIN [Concomitant]
     Dosage: UNK, UNK
  2. ZOMETA [Suspect]
     Dosage: UNK, UNK

REACTIONS (5)
  - BONE PAIN [None]
  - EXOPHTHALMOS [None]
  - OCULAR HYPERAEMIA [None]
  - PYREXIA [None]
  - SWELLING FACE [None]
